FAERS Safety Report 4813835-8 (Version None)
Quarter: 2005Q4

REPORT INFORMATION
  Report Type: 
  Country: None (occurrence: None)
  Receive Date: 20051028
  Receipt Date: 20050328
  Transmission Date: 20060501
  Serious: No
  Sender: FDA-Public Use
  Company Number: US-GLAXOSMITHKLINE-A0551448A

PATIENT
  Age: 68 Year
  Sex: Female
  Weight: 62.3 kg

DRUGS (2)
  1. ADVAIR DISKUS 100/50 [Suspect]
     Indication: CHRONIC OBSTRUCTIVE PULMONARY DISEASE
     Dosage: 1PUFF TWICE PER DAY
     Route: 055
     Dates: start: 20030103
  2. SYNTHROID [Concomitant]
     Route: 048

REACTIONS (3)
  - BRONCHITIS [None]
  - DYSPHONIA [None]
  - NASOPHARYNGITIS [None]
